FAERS Safety Report 5974857-7 (Version None)
Quarter: 2008Q4

REPORT INFORMATION
  Report Type: 
  Country: None (occurrence: None)
  Receive Date: 20081202
  Receipt Date: 20081118
  Transmission Date: 20090506
  Serious: Yes (Hospitalization)
  Sender: FDA-Public Use
  Company Number: DE-PFIZER INC-2008099718

PATIENT
  Sex: Male
  Weight: 50 kg

DRUGS (6)
  1. MARAVIROC [Suspect]
     Indication: HIV INFECTION
     Dosage: DAILY DOSE:600MG
     Route: 048
     Dates: start: 20051123, end: 20060104
  2. MARAVIROC [Suspect]
     Dosage: DAILY DOSE:300MG
     Route: 048
     Dates: start: 20060105
  3. COMBIVIR [Concomitant]
     Route: 048
  4. PREZISTA [Concomitant]
     Route: 048
  5. NORVIR [Concomitant]
     Route: 048
  6. VIREAD [Concomitant]
     Route: 048

REACTIONS (1)
  - MYOCARDIAL INFARCTION [None]
